FAERS Safety Report 19024793 (Version 1)
Quarter: 2021Q1

REPORT INFORMATION
  Report Type: Report from Study
  Country: IN (occurrence: IN)
  Receive Date: 20210318
  Receipt Date: 20210318
  Transmission Date: 20210420
  Serious: Yes (Hospitalization, Other)
  Sender: FDA-Public Use
  Company Number: IN-JNJFOC-20210331626

PATIENT
  Age: 62 Year
  Sex: Male

DRUGS (2)
  1. TRAMADOL HYDROCHLORIDE. [Suspect]
     Active Substance: TRAMADOL HYDROCHLORIDE
     Indication: BACK PAIN
     Dosage: UNK
     Route: 065
  2. FLUOXETINE [Interacting]
     Active Substance: FLUOXETINE HYDROCHLORIDE
     Indication: PRODUCT USED FOR UNKNOWN INDICATION
     Dosage: UNK
     Route: 065

REACTIONS (9)
  - Respiratory failure [Unknown]
  - Serotonin syndrome [Unknown]
  - Hyponatraemia [Unknown]
  - Tachycardia [Unknown]
  - Chronic obstructive pulmonary disease [Unknown]
  - Drug interaction [Unknown]
  - Oedema [Unknown]
  - Somnolence [Unknown]
  - Tachypnoea [Unknown]
